FAERS Safety Report 4474322-2 (Version None)
Quarter: 2004Q4

REPORT INFORMATION
  Report Type: 
  Country: None (occurrence: None)
  Receive Date: 20041012
  Receipt Date: 20040930
  Transmission Date: 20050328
  Serious: Yes (Death, Other)
  Sender: FDA-Public Use
  Company Number: 2004218874JP

PATIENT
  Age: 64 Year
  Sex: Male

DRUGS (2)
  1. CAMPTOSAR [Suspect]
     Indication: GASTRIC CANCER
     Dosage: 66 MG, UNK, IV DRIP
     Route: 041
     Dates: start: 20040512, end: 20040512
  2. PACLITAXEL [Suspect]
     Indication: GASTRIC CANCER
     Dosage: 66 MG, UNK, IV DRIP
     Route: 041
     Dates: start: 20040512, end: 20040512

REACTIONS (7)
  - DISEASE PROGRESSION [None]
  - GASTRIC CANCER [None]
  - LEUKOPENIA [None]
  - LYMPHANGIOSIS CARCINOMATOSA [None]
  - NEUTROPENIA [None]
  - PNEUMONIA [None]
  - RESPIRATORY FAILURE [None]
